FAERS Safety Report 16115446 (Version 4)
Quarter: 2019Q2

REPORT INFORMATION
  Report Type: Report from Study
  Country: DO (occurrence: DO)
  Receive Date: 20190325
  Receipt Date: 20190509
  Transmission Date: 20190711
  Serious: Yes (Other)
  Sender: FDA-Public Use
  Company Number: PHHY2017DO168658

PATIENT
  Age: 36 Year
  Sex: Female

DRUGS (19)
  1. VITAMIN C [Concomitant]
     Active Substance: ASCORBIC ACID
     Indication: PRODUCT USED FOR UNKNOWN INDICATION
     Dosage: UNK
     Route: 065
  2. TRAVATAN [Concomitant]
     Active Substance: TRAVOPROST
     Indication: GLAUCOMA
     Dosage: 1 DF IN EACH EYE, UNK
     Route: 047
  3. VITAMIN D NOS [Concomitant]
     Active Substance: VITAMIN D NOS
     Indication: PRODUCT USED FOR UNKNOWN INDICATION
     Dosage: 10000 U, QD
     Route: 065
  4. QLAIRA [Concomitant]
     Active Substance: DIENOGEST\ESTRADIOL VALERATE
     Indication: MENSTRUAL DISORDER
     Dosage: 0.3 MG, QD
     Route: 065
  5. VITAMIN D3 [Concomitant]
     Active Substance: CHOLECALCIFEROL
     Indication: PRODUCT USED FOR UNKNOWN INDICATION
     Dosage: 1 DF, QD
     Route: 065
  6. IMPEDIL [Concomitant]
     Indication: BACK PAIN
     Dosage: 400 MG, UNK
     Route: 065
  7. FERFOLI [Concomitant]
     Indication: PRODUCT USED FOR UNKNOWN INDICATION
     Route: 065
  8. MAGNESIUM [Concomitant]
     Active Substance: MAGNESIUM
     Indication: PRODUCT USED FOR UNKNOWN INDICATION
     Dosage: 1 DF, QD
     Route: 065
  9. PREGABALIN. [Suspect]
     Active Substance: PREGABALIN
     Indication: MULTIPLE SCLEROSIS
     Dosage: 75 MG, UNK
     Route: 065
     Dates: start: 20190201, end: 20190228
  10. VITAMINS NOS [Concomitant]
     Active Substance: VITAMINS
     Indication: PRODUCT USED FOR UNKNOWN INDICATION
     Dosage: UNK UNK, QD
     Route: 048
  11. INFLACORT [Concomitant]
     Indication: HYPOAESTHESIA
     Dosage: 6+6 (ONLY DOSE)
     Route: 030
  12. OMEPRAZOLE. [Concomitant]
     Active Substance: OMEPRAZOLE
     Indication: FASTING
     Dosage: UNK
     Route: 048
  13. FLUCONAZOLE. [Suspect]
     Active Substance: FLUCONAZOLE
     Indication: VULVOVAGINAL MYCOTIC INFECTION
     Dosage: 150 MG, QW
     Route: 065
  14. VITAMIN B12 [Concomitant]
     Active Substance: CYANOCOBALAMIN
     Indication: PRODUCT USED FOR UNKNOWN INDICATION
     Dosage: UNK UNK, QD
     Route: 065
  15. TRAVATAN [Concomitant]
     Active Substance: TRAVOPROST
     Indication: VISUAL IMPAIRMENT
  16. TRAVATAN [Concomitant]
     Active Substance: TRAVOPROST
     Indication: OCULAR HYPERAEMIA
  17. GILENYA [Suspect]
     Active Substance: FINGOLIMOD HYDROCHLORIDE
     Indication: PRODUCT USED FOR UNKNOWN INDICATION
     Dosage: 0.5 MG, UNK
     Route: 065
     Dates: start: 20171109, end: 20190306
  18. SUMIGRAN [Concomitant]
     Indication: HEADACHE
     Dosage: UNK
     Route: 065
  19. BIOTIN [Concomitant]
     Active Substance: BIOTIN
     Indication: PRODUCT USED FOR UNKNOWN INDICATION
     Dosage: 1 DF, QD
     Route: 048

REACTIONS (18)
  - Back pain [Unknown]
  - Thrombocytopenia [Unknown]
  - Salivary hypersecretion [Unknown]
  - Malaise [Unknown]
  - Dizziness [Unknown]
  - Lymphopenia [Recovering/Resolving]
  - Hypoaesthesia [Recovered/Resolved]
  - Heart rate decreased [Unknown]
  - White blood cell count decreased [Unknown]
  - Multiple sclerosis relapse [Unknown]
  - Tinnitus [Unknown]
  - Blood disorder [Unknown]
  - Headache [Unknown]
  - Optic neuritis [Recovering/Resolving]
  - Fatigue [Unknown]
  - Migraine [Unknown]
  - Arthralgia [Unknown]
  - Muscular weakness [Unknown]

NARRATIVE: CASE EVENT DATE: 20171109
